FAERS Safety Report 6492938-9 (Version None)
Quarter: 2009Q4

REPORT INFORMATION
  Report Type: 
  Country: None (occurrence: None)
  Receive Date: 20091214
  Receipt Date: 20091204
  Transmission Date: 20100525
  Serious: Yes (Other)
  Sender: FDA-Public Use
  Company Number: US-AMGEN-QUU378806

PATIENT
  Sex: Female

DRUGS (5)
  1. ENBREL [Suspect]
     Indication: PSORIASIS
     Route: 058
     Dates: start: 20060901
  2. B COMPLEX ELX [Concomitant]
     Dates: start: 20090101, end: 20090909
  3. LOVENOX [Concomitant]
     Dates: start: 20090101, end: 20091010
  4. HEPARIN [Concomitant]
     Dates: start: 20090814, end: 20090909
  5. VITAMIN TAB [Concomitant]
     Dates: start: 20090101, end: 20090909

REACTIONS (2)
  - PLACENTA PRAEVIA [None]
  - PREMATURE LABOUR [None]
